FAERS Safety Report 22372739 (Version 1)
Quarter: 2023Q2

REPORT INFORMATION
  Report Type: Spontaneous
  Country: US (occurrence: None)
  Receive Date: 20230525
  Receipt Date: 20230525
  Transmission Date: 20230721
  Serious: Yes (Hospitalization)
  Sender: FDA-Public Use
  Company Number: None

PATIENT
  Age: 64 Year
  Sex: Female
  Weight: 67.5 kg

DRUGS (12)
  1. HIZENTRA [Suspect]
     Active Substance: HUMAN IMMUNOGLOBULIN G
     Indication: Immunodeficiency
     Dosage: OTHER FREQUENCY : ONCE WEEKLY;?
     Route: 058
     Dates: start: 20180417
  2. HIZENTRA [Suspect]
     Active Substance: HUMAN IMMUNOGLOBULIN G
     Indication: Immunodeficiency
     Dosage: OTHER FREQUENCY : ONCE WEEKLY;?
     Route: 058
     Dates: start: 20180417
  3. ABILIFY [Concomitant]
     Active Substance: ARIPIPRAZOLE
     Dates: start: 20190621
  4. ARMOUR THYROID [Concomitant]
     Active Substance: THYROID, PORCINE
     Dates: start: 20170607
  5. CELLCEPT [Concomitant]
     Active Substance: MYCOPHENOLATE MOFETIL
     Dates: start: 20170612
  6. ESTROGEL [Concomitant]
     Active Substance: ESTRADIOL
     Dates: start: 20170612
  7. LORAZEPAM [Concomitant]
     Active Substance: LORAZEPAM
     Dates: start: 20170612
  8. MESTINON [Concomitant]
     Active Substance: PYRIDOSTIGMINE BROMIDE
     Dates: start: 20170612
  9. PREDNISONE [Concomitant]
     Active Substance: PREDNISONE
     Dates: start: 20170612
  10. TRAMADOL [Concomitant]
     Active Substance: TRAMADOL
     Dates: start: 20170612
  11. TRAZODONE [Concomitant]
     Active Substance: TRAZODONE HYDROCHLORIDE
     Dates: start: 20170612
  12. VALACYCLOVIR [Concomitant]
     Active Substance: VALACYCLOVIR HYDROCHLORIDE
     Dates: start: 20170612

REACTIONS (1)
  - Thrombosis [None]

NARRATIVE: CASE EVENT DATE: 20230517
